FAERS Safety Report 9012381 (Version 1)
Quarter: 2013Q1

REPORT INFORMATION
  Report Type: Spontaneous
  Country: US (occurrence: US)
  Receive Date: 20130114
  Receipt Date: 20130114
  Transmission Date: 20140127
  Serious: Yes (Other)
  Sender: FDA-Public Use
  Company Number: US-009507513-1301USA004165

PATIENT
  Age: 59 Year
  Sex: Male

DRUGS (7)
  1. SINGULAIR [Suspect]
     Indication: ASTHMA
  2. SINGULAIR [Suspect]
     Indication: PRODUCT USED FOR UNKNOWN INDICATION
  3. ADVAIR [Suspect]
     Dosage: 250 UNK, UNK
  4. ADVAIR [Suspect]
     Dosage: 500 UNK, UNK
  5. XOLAIR [Suspect]
     Dosage: 1.2 UNK, 1/MONTH
     Route: 058
  6. QVAR [Concomitant]
  7. PREDNISONE [Concomitant]

REACTIONS (3)
  - Headache [Unknown]
  - Feeling hot [Unknown]
  - Dermatitis [Unknown]
